FAERS Safety Report 5027002-9 (Version None)
Quarter: 2006Q2

REPORT INFORMATION
  Report Type: 
  Country: None (occurrence: None)
  Receive Date: 20060615
  Receipt Date: 20060302
  Transmission Date: 20061013
  Serious: Yes (Other)
  Sender: FDA-Public Use
  Company Number: PHEH2006US02892

PATIENT
  Age: 63 Year
  Sex: Male
  Weight: 99.773 kg

DRUGS (3)
  1. LUPRON [Concomitant]
  2. CASODEX [Concomitant]
     Indication: PROSTATE CANCER
     Dosage: 50 MG, QD
     Dates: start: 20031001, end: 20051201
  3. ZOMETA [Suspect]
     Indication: METASTASIS
     Dosage: 4 MG, EVERY 3 MONTHS
     Dates: start: 20050720, end: 20050921

REACTIONS (3)
  - BONE DISORDER [None]
  - OSTEONECROSIS [None]
  - PROSTATIC SPECIFIC ANTIGEN INCREASED [None]
